FAERS Safety Report 22183378 (Version 1)
Quarter: 2023Q2

REPORT INFORMATION
  Report Type: Spontaneous
  Country: FI (occurrence: None)
  Receive Date: 20230406
  Receipt Date: 20230406
  Transmission Date: 20230722
  Serious: Yes (Hospitalization)
  Sender: FDA-Public Use
  Company Number: 2023A075382

PATIENT
  Sex: Female

DRUGS (10)
  1. ROSUVASTATIN [Interacting]
     Active Substance: ROSUVASTATIN
     Indication: Acute myocardial infarction
     Route: 048
  2. TICAGRELOR [Interacting]
     Active Substance: TICAGRELOR
     Indication: Acute myocardial infarction
     Route: 048
  3. ACETYLSALYCIL ACID [Concomitant]
  4. BISOPROLOL [Concomitant]
     Active Substance: BISOPROLOL
     Dosage: 0.5 X2
  5. EZETIMIBE [Concomitant]
     Active Substance: EZETIMIBE
  6. ISOSORBIDE DINITRATE [Concomitant]
     Active Substance: ISOSORBIDE DINITRATE
  7. NICOTINE [Concomitant]
     Active Substance: NICOTINE
     Route: 048
  8. PANTOPRAZOLE [Concomitant]
     Active Substance: PANTOPRAZOLE
  9. RAMIPRIL [Concomitant]
     Active Substance: RAMIPRIL
     Dosage: 1X2 UNIT DAY 20
  10. AMDINOCILLIN PIVOXIL [Concomitant]
     Active Substance: AMDINOCILLIN PIVOXIL
     Dosage: 200 MG 1X 3

REACTIONS (3)
  - Drug interaction [Recovered/Resolved]
  - Renal impairment [Recovered/Resolved]
  - Rhabdomyolysis [Recovered/Resolved]
